FAERS Safety Report 7240689-5 (Version None)
Quarter: 2011Q1

REPORT INFORMATION
  Report Type: 
  Country: None (occurrence: None)
  Receive Date: 20110124
  Receipt Date: 20100429
  Transmission Date: 20110831
  Serious: No
  Sender: FDA-Public Use
  Company Number: US-KINGPHARMUSA00001-K201000527

PATIENT
  Sex: Female
  Weight: 78.005 kg

DRUGS (6)
  1. ZYRTEC [Concomitant]
     Indication: HYPERSENSITIVITY
     Dosage: UNK
  2. ALBUTEROL [Concomitant]
     Indication: ASTHMA
     Dosage: UNK
  3. BENADRYL [Concomitant]
     Indication: HYPERSENSITIVITY
     Dosage: ^25 X 2^ MG, PRN
  4. EPIPEN [Suspect]
     Indication: HYPERSENSITIVITY
  5. EPIPEN [Suspect]
     Indication: ANAPHYLACTIC REACTION
     Dosage: 0.3 MG, SINGLE
     Route: 030
     Dates: start: 20100428, end: 20100428
  6. PULMICORT [Concomitant]
     Dosage: UNK

REACTIONS (4)
  - DRUG INEFFECTIVE [None]
  - TREMOR [None]
  - INJECTION SITE PAIN [None]
  - INJECTION SITE HAEMORRHAGE [None]
